FAERS Safety Report 8403197-1 (Version None)
Quarter: 2012Q2

REPORT INFORMATION
  Report Type: 
  Country: None (occurrence: None)
  Receive Date: 20120601
  Receipt Date: 20120521
  Transmission Date: 20120825
  Serious: Yes (Hospitalization)
  Sender: FDA-Public Use
  Company Number: US-JNJFOC-20110508213

PATIENT
  Sex: Female

DRUGS (8)
  1. ASMANEX TWISTHALER [Concomitant]
     Dosage: AT BEDTIME
  2. EXTRA STRENGTH TYLENOL [Suspect]
     Indication: HEADACHE
  3. FLUOXETINE [Concomitant]
     Indication: POSTPARTUM DEPRESSION
  4. IBUPROFEN [Concomitant]
     Indication: PRODUCT USED FOR UNKNOWN INDICATION
     Dosage: 1 TABLET EVERY 6 HRS AS NEEDED.
  5. EXTRA STRENGTH TYLENOL [Suspect]
     Indication: BACK PAIN
  6. TYLENOL W/ CODEINE NO. 3 [Suspect]
     Indication: BACK PAIN
     Dosage: 1 OR 2 TABLETS 4-6 HOURS AS NEEDED
  7. KEPPRA [Concomitant]
  8. PROAIR HFA [Concomitant]
     Indication: DYSPNOEA
     Dosage: TWO PUFFS

REACTIONS (6)
  - DRUG ADMINISTRATION ERROR [None]
  - MATERNAL EXPOSURE DURING PREGNANCY [None]
  - OVERDOSE [None]
  - URINARY TRACT INFECTION [None]
  - INAPPROPRIATE SCHEDULE OF DRUG ADMINISTRATION [None]
  - CHRONIC HEPATITIS [None]
